FAERS Safety Report 13644642 (Version 1)
Quarter: 2017Q2

REPORT INFORMATION
  Report Type: Spontaneous
  Country: US (occurrence: US)
  Receive Date: 20170612
  Receipt Date: 20170612
  Transmission Date: 20170830
  Serious: No
  Sender: FDA-Public Use
  Company Number: US-ROCHE-1360528

PATIENT
  Sex: Male

DRUGS (10)
  1. NORVASC [Concomitant]
     Active Substance: AMLODIPINE BESYLATE
  2. CARDURA [Concomitant]
     Active Substance: DOXAZOSIN MESYLATE
  3. XELODA [Suspect]
     Active Substance: CAPECITABINE
     Dosage: AT EVENING
     Route: 048
     Dates: start: 20140129
  4. NITROGLYCERIN. [Concomitant]
     Active Substance: NITROGLYCERIN
  5. XELODA [Suspect]
     Active Substance: CAPECITABINE
     Dosage: MORNING
     Route: 048
     Dates: start: 20140129
  6. OMEPRAZOLE. [Concomitant]
     Active Substance: OMEPRAZOLE
  7. XELODA [Suspect]
     Active Substance: CAPECITABINE
     Indication: GASTRIC CANCER
     Dosage: AM
     Route: 048
     Dates: start: 20140129
  8. XELODA [Suspect]
     Active Substance: CAPECITABINE
     Dosage: AT EVENING
     Route: 048
     Dates: start: 20140129
  9. LOVASTATIN. [Concomitant]
     Active Substance: LOVASTATIN
  10. ATENOLOL. [Concomitant]
     Active Substance: ATENOLOL

REACTIONS (1)
  - Diarrhoea [Not Recovered/Not Resolved]
